FAERS Safety Report 9571410 (Version 2)
Quarter: 2013Q4

REPORT INFORMATION
  Report Type: Report from Study
  Country: US (occurrence: US)
  Receive Date: 20131001
  Receipt Date: 20131001
  Transmission Date: 20140711
  Serious: Yes (Hospitalization, Other)
  Sender: FDA-Public Use
  Company Number: US-ABBVIE-11P-163-0860870-00

PATIENT
  Age: 46 Year
  Sex: Female
  Weight: 53.57 kg

DRUGS (5)
  1. HUMIRA 40 MG/0.8 ML PEN [Suspect]
     Indication: CROHN^S DISEASE
     Route: 058
     Dates: start: 200501, end: 20100907
  2. HUMIRA 40 MG/0.8 ML PEN [Suspect]
  3. LORTAB [Concomitant]
     Indication: PAIN
     Dosage: 10/500
  4. LEVOTHYROXINE [Concomitant]
     Indication: HYPOTHYROIDISM
  5. GENERIC THYROID [Concomitant]
     Indication: THYROID FUNCTION TEST ABNORMAL

REACTIONS (9)
  - Intestinal infarction [Recovered/Resolved]
  - Abdominal pain [Recovered/Resolved]
  - Feeling cold [Recovered/Resolved]
  - Hypotension [Recovered/Resolved]
  - Ileal perforation [Recovered/Resolved]
  - Crohn^s disease [Recovered/Resolved]
  - Fall [Unknown]
  - Hip fracture [Unknown]
  - Tuberculin test positive [Unknown]
